FAERS Safety Report 8570132-5 (Version None)
Quarter: 2012Q3

REPORT INFORMATION
  Report Type: 
  Country: None (occurrence: None)
  Receive Date: 20120803
  Receipt Date: 20120424
  Transmission Date: 20120928
  Serious: No
  Sender: FDA-Public Use
  Company Number: US-ABBOTT-12P-163-0913555-00

PATIENT
  Sex: Female

DRUGS (4)
  1. NIASPAN [Suspect]
     Indication: HYPERLIPIDAEMIA
     Dates: start: 20111001
  2. NIASPAN [Suspect]
     Dosage: 1000 MG 2 TABS AT BEDTIME
     Dates: start: 20110824, end: 20120308
  3. NIASPAN [Suspect]
     Indication: BLOOD CHOLESTEROL
     Dates: start: 20100101, end: 20111001
  4. MAXALT [Concomitant]
     Indication: MIGRAINE

REACTIONS (8)
  - NAUSEA [None]
  - LIVER DISORDER [None]
  - VOMITING [None]
  - OEDEMA PERIPHERAL [None]
  - PARAESTHESIA [None]
  - HYPOAESTHESIA [None]
  - HIGH DENSITY LIPOPROTEIN DECREASED [None]
  - HEPATIC ENZYME INCREASED [None]
